FAERS Safety Report 14689941 (Version 1)
Quarter: 2018Q1

REPORT INFORMATION
  Report Type: Report from Study
  Country: RU (occurrence: RU)
  Receive Date: 20180328
  Receipt Date: 20180328
  Transmission Date: 20180509
  Serious: Yes (Other)
  Sender: FDA-Public Use
  Company Number: RU-TEVA-2018-RU-871378

PATIENT
  Age: 5 Year
  Sex: Male
  Weight: 19 kg

DRUGS (4)
  1. LONQUEX [Suspect]
     Active Substance: LIPEGFILGRASTIM
     Indication: NEUTROPENIA
  2. IFOSFAMIDE. [Suspect]
     Active Substance: IFOSFAMIDE
     Indication: CHEMOTHERAPY
     Dosage: 2310 MILLIGRAM DAILY; DATE OF LAST DOSE PRIOR TO SAE- 23FEB2018
     Route: 042
     Dates: start: 20180222
  3. VINCRISTINE [Suspect]
     Active Substance: VINCRISTINE
     Indication: CHEMOTHERAPY
     Dosage: 1.2 MILLIGRAM DAILY; DATE OF LAST DOSE PRIOR TO SAE- 22FEB2018
     Route: 042
     Dates: start: 20180222
  4. NEUPOGEN [Suspect]
     Active Substance: FILGRASTIM
     Indication: NEUTROPENIA
     Dosage: 99 MILLIGRAM DAILY; LAST DOSE PRIOR TO SAE ONSET- 14JAN2018
     Route: 058
     Dates: start: 20171030

REACTIONS (1)
  - Lymphocyte count decreased [Recovered/Resolved with Sequelae]

NARRATIVE: CASE EVENT DATE: 20180223
